FAERS Safety Report 26038954 (Version 1)
Quarter: 2025Q4

REPORT INFORMATION
  Report Type: Spontaneous
  Country: US (occurrence: US)
  Receive Date: 20251113
  Receipt Date: 20251113
  Transmission Date: 20260118
  Serious: No
  Sender: ROCHE
  Company Number: US-ROCHE-10000427203

PATIENT
  Age: 85 Year
  Sex: Female

DRUGS (1)
  1. ACTEMRA [Suspect]
     Active Substance: TOCILIZUMAB
     Indication: Giant cell arteritis
     Route: 058
     Dates: start: 202402

REACTIONS (3)
  - Injection site haemorrhage [Not Recovered/Not Resolved]
  - Product use issue [Unknown]
  - Injection site discharge [Unknown]

NARRATIVE: CASE EVENT DATE: 20240201
